FAERS Safety Report 25106433 (Version 2)
Quarter: 2025Q2

REPORT INFORMATION
  Report Type: Spontaneous
  Country: US (occurrence: None)
  Receive Date: 20250321
  Receipt Date: 20250613
  Transmission Date: 20250717
  Serious: No
  Sender: INCYTE
  Company Number: US-INCYTE CORPORATION-2024IN006792

PATIENT
  Age: 60 Year

DRUGS (9)
  1. PEMAZYRE [Suspect]
     Active Substance: PEMIGATINIB
     Indication: Cholangiocarcinoma
     Route: 065
  2. PEMAZYRE [Suspect]
     Active Substance: PEMIGATINIB
     Dosage: 4.5 MILLIGRAM,  QPM,  2 WEEKS ON AND 1 WEEK OFF
     Route: 065
  3. PEMAZYRE [Suspect]
     Active Substance: PEMIGATINIB
  4. PEMAZYRE [Suspect]
     Active Substance: PEMIGATINIB
     Route: 065
  5. ELIQUIS [Concomitant]
     Active Substance: APIXABAN
     Indication: Product used for unknown indication
     Route: 065
  6. PRILOSEC [Concomitant]
     Active Substance: OMEPRAZOLE MAGNESIUM
     Indication: Product used for unknown indication
     Route: 065
  7. ZYPREXA [Concomitant]
     Active Substance: OLANZAPINE
     Indication: Product used for unknown indication
     Route: 065
  8. PROBIOTICS NOS [Concomitant]
     Active Substance: PROBIOTICS NOS
     Indication: Product used for unknown indication
     Route: 065
  9. MAGNESIUM [Concomitant]
     Active Substance: MAGNESIUM
     Indication: Product used for unknown indication
     Route: 065

REACTIONS (13)
  - Emotional disorder [Unknown]
  - Visual impairment [Not Recovered/Not Resolved]
  - White blood cell count decreased [Unknown]
  - Herpes zoster [Recovered/Resolved]
  - Nail discomfort [Unknown]
  - Red blood cell count decreased [Unknown]
  - Nail toxicity [Unknown]
  - Alopecia [Unknown]
  - Fatigue [Unknown]
  - Stomatitis [Not Recovered/Not Resolved]
  - Onychomadesis [Not Recovered/Not Resolved]
  - Trichiasis [Unknown]
  - Off label use [Unknown]
